FAERS Safety Report 17799771 (Version 1)
Quarter: 2020Q2

REPORT INFORMATION
  Report Type: Spontaneous
  Country: US (occurrence: US)
  Receive Date: 20200518
  Receipt Date: 20200518
  Transmission Date: 20200714
  Serious: Yes (Other)
  Sender: FDA-Public Use
  Company Number: US-GILEAD-2020-0467075

PATIENT

DRUGS (1)
  1. TRUVADA [Suspect]
     Active Substance: EMTRICITABINE\TENOFOVIR DISOPROXIL FUMARATE
     Indication: PRODUCT USED FOR UNKNOWN INDICATION
     Dosage: UNK
     Route: 048
     Dates: start: 2008, end: 2012

REACTIONS (13)
  - Vitamin D deficiency [Unknown]
  - Arthrodesis [Unknown]
  - Osteoarthritis [Unknown]
  - Osteoporosis [Unknown]
  - Fibula fracture [Unknown]
  - Tooth loss [Unknown]
  - Fracture [Unknown]
  - Bone density decreased [Unknown]
  - Arthritis [Unknown]
  - Osteonecrosis [Unknown]
  - Hip arthroplasty [Unknown]
  - Ankle fracture [Unknown]
  - Bone loss [Unknown]
